FAERS Safety Report 8489973-8 (Version None)
Quarter: 2012Q2

REPORT INFORMATION
  Report Type: 
  Country: None (occurrence: None)
  Receive Date: 20120626
  Receipt Date: 20120611
  Transmission Date: 20120825
  Serious: Yes (Other)
  Sender: FDA-Public Use
  Company Number: 2011MA002704

PATIENT
  Sex: Male

DRUGS (28)
  1. PANCRELIPASE [Concomitant]
  2. MORPHINE [Concomitant]
  3. FAMOTIDINE [Concomitant]
  4. ENULOSE [Concomitant]
  5. AMLODIPINE [Concomitant]
  6. HYDROMORPHONE HCL [Concomitant]
  7. LABETALOL HCL [Concomitant]
  8. CATAPRES [Concomitant]
  9. PREVACID [Concomitant]
  10. DICYCLOMINE [Concomitant]
  11. PROMETHAZINE [Concomitant]
  12. LORAZEPAM [Concomitant]
  13. VERAPAMIL [Concomitant]
  14. CLONIDINE [Concomitant]
  15. PROMETHEGAN [Concomitant]
  16. BUSPIRONE HCL [Concomitant]
  17. METFORMIN HCL [Concomitant]
  18. OXYCODONE HCL AND ACETAMINOPHEN [Concomitant]
  19. CARAFATE [Concomitant]
  20. TRAZODONE HYDROCHLORIDE [Concomitant]
  21. METOCLOPRAMIDE [Suspect]
     Dosage: ;TID;PO
     Route: 048
     Dates: start: 20070102, end: 20100701
  22. LANSOPRAZOLE [Concomitant]
  23. FELODIPINE [Concomitant]
  24. BISACODYL [Concomitant]
  25. CHLORPROMAZINE HCL [Concomitant]
  26. PAROXETINE [Concomitant]
  27. ZOLPIDEM [Concomitant]
  28. LISINOPRIL [Concomitant]

REACTIONS (8)
  - AKATHISIA [None]
  - TARDIVE DYSKINESIA [None]
  - DYSTONIA [None]
  - EMOTIONAL DISORDER [None]
  - INJURY [None]
  - EXTRAPYRAMIDAL DISORDER [None]
  - TREMOR [None]
  - ECONOMIC PROBLEM [None]
